FAERS Safety Report 4833186-5 (Version None)
Quarter: 2005Q4

REPORT INFORMATION
  Report Type: 
  Country: None (occurrence: None)
  Receive Date: 20051117
  Receipt Date: 20051104
  Transmission Date: 20060501
  Serious: Yes (Other)
  Sender: FDA-Public Use
  Company Number: KII-2005-0019532

PATIENT
  Age: 52 Year
  Sex: Male

DRUGS (7)
  1. OXYCODONE HCL [Suspect]
     Dosage: ORAL
     Route: 048
  2. MORPHINE [Suspect]
     Dosage: SEE TEXT, ORAL
     Route: 048
  3. ANTIDEPRESSANTS [Suspect]
     Dosage: ORAL
     Route: 048
  4. AMITRIPTYLINE HCL [Suspect]
     Dosage: ORAL
     Route: 048
  5. ALPRAZOLAM [Suspect]
     Dosage: ORAL
     Route: 048
  6. TIZANIDINE (TIZANIDINE) [Suspect]
     Dosage: ORAL
     Route: 048
  7. GABAPENTIN [Suspect]
     Dosage: ORAL
     Route: 048

REACTIONS (4)
  - DELIRIUM TREMENS [None]
  - DEPRESSED LEVEL OF CONSCIOUSNESS [None]
  - TACHYCARDIA [None]
  - TARDIVE DYSKINESIA [None]
